FAERS Safety Report 5786818-1 (Version None)
Quarter: 2008Q2

REPORT INFORMATION
  Report Type: 
  Country: None (occurrence: None)
  Receive Date: 20080618
  Receipt Date: 20080609
  Transmission Date: 20081010
  Serious: Yes (Death)
  Sender: FDA-Public Use
  Company Number: 001301

PATIENT
  Age: 2 Year
  Sex: Female

DRUGS (3)
  1. BUSULFEX [Suspect]
     Indication: STEM CELL TRANSPLANT
     Dosage: 8.4 ML
     Route: 042
     Dates: start: 20071124, end: 20071127
  2. FLUDARABINE PHOSPHATE [Concomitant]
  3. MELPHALAN (MELPHALAN) [Concomitant]

REACTIONS (2)
  - CORD BLOOD TRANSPLANT THERAPY [None]
  - IDIOPATHIC PNEUMONIA SYNDROME [None]
